FAERS Safety Report 5576592-6 (Version None)
Quarter: 2007Q4

REPORT INFORMATION
  Report Type: 
  Country: None (occurrence: None)
  Receive Date: 20071228
  Receipt Date: 20071128
  Transmission Date: 20080405
  Serious: Yes (Hospitalization)
  Sender: FDA-Public Use
  Company Number: A0696284A

PATIENT
  Age: 6 Year
  Sex: Female

DRUGS (5)
  1. FLOVENT [Suspect]
     Indication: ASTHMA
     Dosage: 4PUFF AT NIGHT
     Route: 055
     Dates: start: 20071101
  2. BIAXIN [Concomitant]
  3. XOPENEX [Concomitant]
  4. NASONEX [Concomitant]
  5. ORAPRED [Concomitant]

REACTIONS (2)
  - PNEUMONIA [None]
  - WHEEZING [None]
